FAERS Safety Report 19993297 (Version 5)
Quarter: 2022Q3

REPORT INFORMATION
  Report Type: Report from Study
  Country: US (occurrence: US)
  Receive Date: 20211026
  Receipt Date: 20220907
  Transmission Date: 20221027
  Serious: No
  Sender: FDA-Public Use
  Company Number: NVSC2021US243270

PATIENT
  Sex: Male

DRUGS (1)
  1. ILARIS [Suspect]
     Active Substance: CANAKINUMAB
     Indication: Juvenile idiopathic arthritis
     Dosage: 150 MG, OTHER, (Q 28 DAYS)
     Route: 058
     Dates: start: 20210923

REACTIONS (5)
  - Rhinorrhoea [Unknown]
  - Cough [Unknown]
  - Rash [Unknown]
  - Nasopharyngitis [Unknown]
  - Product use in unapproved indication [Unknown]
